FAERS Safety Report 8131717-3 (Version None)
Quarter: 2012Q1

REPORT INFORMATION
  Report Type: 
  Country: None (occurrence: None)
  Receive Date: 20120213
  Receipt Date: 20120203
  Transmission Date: 20120608
  Serious: Yes (Other)
  Sender: FDA-Public Use
  Company Number: US-ASTELLAS-2011US006072

PATIENT
  Sex: Female
  Weight: 73 kg

DRUGS (1)
  1. AMEVIVE [Suspect]
     Indication: PSORIASIS
     Dosage: UNK
     Route: 030
     Dates: start: 20050922

REACTIONS (1)
  - DIABETES MELLITUS [None]
